FAERS Safety Report 25825279 (Version 1)
Quarter: 2025Q3

REPORT INFORMATION
  Report Type: Spontaneous
  Country: KR (occurrence: KR)
  Receive Date: 20250919
  Receipt Date: 20250919
  Transmission Date: 20251020
  Serious: Yes (Hospitalization)
  Sender: ELI LILLY AND COMPANY
  Company Number: KR-ELI_LILLY_AND_COMPANY-KR202509013883

PATIENT
  Age: 49 Year
  Sex: Female

DRUGS (56)
  1. OLUMIANT [Suspect]
     Active Substance: BARICITINIB
     Indication: Alopecia areata
     Dosage: 2MG/1 X 1/7
     Route: 065
     Dates: start: 20241226
  2. OLUMIANT [Suspect]
     Active Substance: BARICITINIB
     Dosage: 2MG/1X1/10
     Route: 065
     Dates: start: 20250103
  3. OLUMIANT [Suspect]
     Active Substance: BARICITINIB
     Dosage: 2MG/1X1/10
     Route: 065
     Dates: start: 20250114
  4. OLUMIANT [Suspect]
     Active Substance: BARICITINIB
     Dosage: 2MG/1X1/10
     Route: 065
     Dates: start: 20250124
  5. OLUMIANT [Suspect]
     Active Substance: BARICITINIB
     Dosage: 2MG/1X1/20
     Route: 065
     Dates: start: 20250206
  6. OLUMIANT [Suspect]
     Active Substance: BARICITINIB
     Dosage: 2MG/1X1/20
     Route: 065
     Dates: start: 20250221
  7. OLUMIANT [Suspect]
     Active Substance: BARICITINIB
     Dosage: 2MG X 1/15 DAYS
     Route: 065
     Dates: start: 20250417, end: 20250430
  8. OLUMIANT [Suspect]
     Active Substance: BARICITINIB
     Dosage: 2MG X 1/41 DAYS
     Route: 065
     Dates: start: 20250501, end: 20250513
  9. OLUMIANT [Suspect]
     Active Substance: BARICITINIB
     Dosage: 2MG X 1/28 DAYS
     Route: 065
     Dates: start: 20250612, end: 20250617
  10. OLUMIANT [Suspect]
     Active Substance: BARICITINIB
     Dosage: 2MG/1X 1/14
     Route: 065
     Dates: start: 20250630
  11. OLUMIANT [Suspect]
     Active Substance: BARICITINIB
     Dosage: 2MG/1X1/28
     Route: 065
     Dates: start: 20250722
  12. OLUMIANT [Suspect]
     Active Substance: BARICITINIB
     Dosage: 2MG X 1/28 DAYS
     Route: 065
     Dates: start: 20250829, end: 20250901
  13. OLUMIANT [Suspect]
     Active Substance: BARICITINIB
     Dosage: 2MG/1X1/28
     Route: 065
     Dates: start: 20250911
  14. BORYUNG ACETYLCYSTEINE [Concomitant]
     Indication: Product used for unknown indication
     Dosage: X 2/1 DAY
     Route: 065
     Dates: start: 20250407, end: 20250407
  15. BORYUNG ACETYLCYSTEINE [Concomitant]
     Dosage: X 3/50 DAYS
     Route: 065
     Dates: start: 20250407, end: 20250513
  16. BORYUNG ACETYLCYSTEINE [Concomitant]
     Dosage: X3/28 DAYS
     Route: 065
     Dates: start: 20250527, end: 20250617
  17. BORYUNG ACETYLCYSTEINE [Concomitant]
     Dosage: X1/1 DAY
     Route: 065
     Dates: start: 20250617
  18. MEGACE ORAL SUSPENSION [Concomitant]
     Indication: Product used for unknown indication
     Dosage: X 2/43 DAYS
     Route: 065
     Dates: start: 20250407, end: 20250513
  19. MEGACE ORAL SUSPENSION [Concomitant]
     Dosage: X2/6 DAYS
     Route: 065
     Dates: start: 20250528, end: 20250602
  20. NAZACARE [Concomitant]
     Indication: Product used for unknown indication
     Dosage: X 1/1 DAYS
     Route: 065
     Dates: start: 20250407, end: 20250513
  21. ROXITHROMYCIN [Concomitant]
     Active Substance: ROXITHROMYCIN
     Indication: Product used for unknown indication
     Dosage: 150MG X 2/50 DAYS
     Route: 065
     Dates: start: 20250407, end: 20250513
  22. ENCOVER [Concomitant]
     Indication: Product used for unknown indication
     Dosage: 200ML X 1/36 DAYS
     Route: 065
     Dates: start: 20250407, end: 20250512
  23. ENCOVER [Concomitant]
     Dosage: 200ML X 1/8 DAYS
     Route: 065
     Dates: start: 20250527, end: 20250603
  24. ENCOVER [Concomitant]
     Dosage: 200ML X 1/28 DAYS
     Route: 065
     Dates: start: 20250811, end: 20250901
  25. ANORO ELLIPTA [Concomitant]
     Active Substance: UMECLIDINIUM BROMIDE\VILANTEROL TRIFENATATE
     Indication: Product used for unknown indication
     Dosage: X 1/1 DAY
     Route: 065
     Dates: start: 20250407, end: 20250513
  26. ANORO ELLIPTA [Concomitant]
     Active Substance: UMECLIDINIUM BROMIDE\VILANTEROL TRIFENATATE
     Dosage: X 1/1 DAY
     Route: 065
     Dates: start: 20250612
  27. ATROVENT [Concomitant]
     Active Substance: IPRATROPIUM BROMIDE
     Indication: Product used for unknown indication
     Dosage: 500MCG X 2/1 DAY
     Route: 055
     Dates: start: 20250407
  28. ATROVENT [Concomitant]
     Active Substance: IPRATROPIUM BROMIDE
     Dosage: 500MCG/2ML X 3/50 DAYS
     Route: 055
     Dates: start: 20250407, end: 20250513
  29. ATROVENT [Concomitant]
     Active Substance: IPRATROPIUM BROMIDE
     Dosage: 500MCG/2ML X 3/28 DAYS
     Route: 055
     Dates: start: 20250617
  30. ATROVENT [Concomitant]
     Active Substance: IPRATROPIUM BROMIDE
     Dosage: 500MCG/2ML X 3/21 DAYS
     Route: 055
     Dates: start: 20250811, end: 20250831
  31. ACETAMINOPHEN [Concomitant]
     Active Substance: ACETAMINOPHEN
     Indication: Product used for unknown indication
     Dosage: 300MG X 1/1 DAY
     Route: 065
     Dates: start: 20250407
  32. ACETAMINOPHEN [Concomitant]
     Active Substance: ACETAMINOPHEN
     Dosage: 300MG X 1/1 DAY
     Route: 065
     Dates: start: 20250407
  33. CODAEWON FORTE [Concomitant]
     Indication: Product used for unknown indication
     Dosage: 20ML X 1/ 40 DAYS
     Route: 065
     Dates: start: 20250417, end: 20250513
  34. CODAEWON FORTE [Concomitant]
     Dosage: 20ML, X 1/28 DAYS
     Route: 065
     Dates: start: 20250527, end: 20250617
  35. MEDILAC DS [Concomitant]
     Indication: Product used for unknown indication
     Dosage: X 3/ 50 DAYS
     Route: 065
     Dates: start: 20250407, end: 20250513
  36. MEDILAC DS [Concomitant]
     Dosage: X 3/10 DAYS
     Route: 065
     Dates: start: 20250527, end: 20250605
  37. MEDILAC DS [Concomitant]
     Dosage: X 3/28 DAYS
     Route: 065
     Dates: start: 20250811, end: 20250901
  38. AVELOX [Concomitant]
     Active Substance: MOXIFLOXACIN HYDROCHLORIDE
     Indication: Product used for unknown indication
     Dosage: 400MG, X 1/8 DAYS
     Route: 065
     Dates: start: 20250617
  39. ESROBAN [Concomitant]
     Indication: Product used for unknown indication
     Dosage: 10G X 1/15 DAYS
     Route: 065
     Dates: start: 20250529, end: 20250616
  40. ESROBAN [Concomitant]
     Dosage: 10G X 1/18DAYS
     Route: 065
     Dates: start: 20250814, end: 20250831
  41. SYNATURA [Concomitant]
     Indication: Product used for unknown indication
     Dosage: X 3/7 DAYS
     Route: 065
     Dates: start: 20250617
  42. SYNATURA [Concomitant]
     Dosage: X 3/7 DAYS
     Route: 065
     Dates: start: 20250901
  43. ACETYLCYSTEINE [Concomitant]
     Active Substance: ACETYLCYSTEINE
     Indication: Product used for unknown indication
     Dosage: 200MG X 1/1
     Route: 065
     Dates: start: 20250617
  44. ACETYLCYSTEINE [Concomitant]
     Active Substance: ACETYLCYSTEINE
     Dosage: 200MG X 1/1 DAY
     Route: 065
     Dates: start: 20250617
  45. ACETYLCYSTEINE [Concomitant]
     Active Substance: ACETYLCYSTEINE
     Dosage: 200MG X 1/1 DAY
     Route: 065
     Dates: start: 20250822
  46. ACETYLCYSTEINE [Concomitant]
     Active Substance: ACETYLCYSTEINE
     Dosage: 200MG X 3/8DAYS
     Route: 065
     Dates: start: 20250822, end: 20250901
  47. DICLOMED [DICLOFENAC] [Concomitant]
     Indication: Product used for unknown indication
     Dosage: X 1/2 DAYS
     Route: 065
     Dates: start: 20250610, end: 20250617
  48. MESTINON [Concomitant]
     Active Substance: PYRIDOSTIGMINE BROMIDE
     Indication: Product used for unknown indication
     Dosage: 60MG, X 1/2 DAYS
     Route: 065
     Dates: start: 20250829, end: 20250830
  49. MESTINON [Concomitant]
     Active Substance: PYRIDOSTIGMINE BROMIDE
     Dosage: 60MG, X 3/10 DAYS
     Route: 065
     Dates: start: 20250829, end: 20250901
  50. MUCOBARRIER [Concomitant]
     Indication: Product used for unknown indication
     Route: 065
     Dates: start: 20250822, end: 20250901
  51. DICLOMED [DICLOFENAC POTASSIUM] [Concomitant]
     Indication: Product used for unknown indication
     Dosage: X 1/1 DAYS
     Route: 065
     Dates: start: 20250901
  52. CHOONGWAE NS [Concomitant]
     Indication: Product used for unknown indication
     Route: 065
     Dates: start: 20250820, end: 20250901
  53. CEFEPIME HYDROCHLORIDE [Concomitant]
     Active Substance: CEFEPIME HYDROCHLORIDE
     Indication: Product used for unknown indication
     Route: 065
     Dates: start: 20250820, end: 20250901
  54. CEFEPIME HYDROCHLORIDE [Concomitant]
     Active Substance: CEFEPIME HYDROCHLORIDE
     Route: 065
     Dates: start: 20250901
  55. SODIUM CHLORIDE [Concomitant]
     Active Substance: SODIUM CHLORIDE
     Indication: Product used for unknown indication
     Route: 065
     Dates: start: 20250821
  56. OFLOXACIN [Concomitant]
     Active Substance: OFLOXACIN
     Indication: Product used for unknown indication
     Route: 065
     Dates: start: 20250812

REACTIONS (3)
  - Respiratory disorder [Recovered/Resolved]
  - Respiratory disorder [Recovered/Resolved]
  - Respiratory disorder [Recovered/Resolved]
